FAERS Safety Report 9192005 (Version 2)
Quarter: 2013Q1

REPORT INFORMATION
  Report Type: Spontaneous
  Country: US (occurrence: None)
  Receive Date: 20130304
  Receipt Date: 20130304
  Transmission Date: 20140127
  Serious: Yes (Death)
  Sender: FDA-Public Use
  Company Number: 1053087-2013-00002

PATIENT
  Age: 51 Year
  Sex: Male
  Weight: 74.84 kg

DRUGS (1)
  1. SODIUM CITRATE [Suspect]
     Indication: APHERESIS
     Dosage: 1 BAG PER PROCEDURE/IV
     Route: 042
     Dates: start: 20130102

REACTIONS (1)
  - Death [None]
